FAERS Safety Report 20969425 (Version 6)
Quarter: 2022Q3

REPORT INFORMATION
  Report Type: Report from Study
  Country: AR (occurrence: AR)
  Receive Date: 20220616
  Receipt Date: 20220923
  Transmission Date: 20221027
  Serious: Yes (Hospitalization, Other)
  Sender: FDA-Public Use
  Company Number: AR-AMGEN-ARGSL2022091159

PATIENT
  Age: 82 Year
  Sex: Male

DRUGS (1)
  1. VECTIBIX [Suspect]
     Active Substance: PANITUMUMAB
     Indication: Colorectal cancer metastatic
     Dosage: UNK UNK, Q2WK(EVERY 14 DAYS )
     Route: 065
     Dates: start: 20220512

REACTIONS (8)
  - Urinary tract infection [Unknown]
  - Asthenia [Unknown]
  - Decreased appetite [Unknown]
  - Colorectal cancer metastatic [Unknown]
  - Pain of skin [Unknown]
  - Rash [Not Recovered/Not Resolved]
  - Colostomy [Unknown]
  - Stoma site reaction [Unknown]

NARRATIVE: CASE EVENT DATE: 20220101
